FAERS Safety Report 7260600-0 (Version None)
Quarter: 2011Q1

REPORT INFORMATION
  Report Type: 
  Country: None (occurrence: None)
  Receive Date: 20110130
  Receipt Date: 20101109
  Transmission Date: 20110831
  Serious: No
  Sender: FDA-Public Use
  Company Number: US-ABBOTT-10P-163-0684617-00

PATIENT
  Weight: 64.468 kg

DRUGS (10)
  1. ENTOCORT EC [Concomitant]
     Indication: CROHN'S DISEASE
  2. VITAMIN B-12 [Concomitant]
     Indication: VITAMIN SUPPLEMENTATION
  3. ALTACE [Concomitant]
     Indication: HYPERTENSION
  4. PANTOPRAZOLE [Concomitant]
     Indication: GASTROOESOPHAGEAL REFLUX DISEASE
  5. HUMIRA [Suspect]
     Indication: CROHN'S DISEASE
     Dates: start: 20101001
  6. ATENOLOL [Concomitant]
     Indication: HYPERTENSION
  7. ALENDRONATE SODIUM [Concomitant]
     Indication: OSTEOPENIA
  8. CALCIUM CITRATE WITH VITAMIN D [Concomitant]
     Indication: MINERAL SUPPLEMENTATION
  9. ADVAIR [Concomitant]
     Indication: EMPHYSEMA
     Dosage: 100/50 MG
  10. MULTI-VITAMIN [Concomitant]
     Indication: VITAMIN SUPPLEMENTATION

REACTIONS (1)
  - INJECTION SITE PAIN [None]
